FAERS Safety Report 12429250 (Version 3)
Quarter: 2018Q3

REPORT INFORMATION
  Report Type: Spontaneous
  Country: BR (occurrence: BR)
  Receive Date: 20160602
  Receipt Date: 20180711
  Transmission Date: 20181010
  Serious: Yes (Other)
  Sender: FDA-Public Use
  Company Number: BR-ASTRAZENECA-2016SE57621

PATIENT
  Age: 770 Month
  Sex: Female

DRUGS (6)
  1. SELOZOK [Suspect]
     Active Substance: METOPROLOL SUCCINATE
     Indication: HYPERTENSION
     Route: 048
     Dates: start: 201605
  2. EFEXOR [Concomitant]
     Active Substance: VENLAFAXINE HYDROCHLORIDE
     Indication: DEPRESSION
     Dates: start: 201603
  3. VITAMINS NOS [Concomitant]
     Active Substance: VITAMINS
  4. SELOZOK [Suspect]
     Active Substance: METOPROLOL SUCCINATE
     Indication: HYPERTENSION
     Route: 048
     Dates: start: 20160505, end: 201605
  5. LORAX [Concomitant]
     Active Substance: LORAZEPAM
     Indication: INSOMNIA
     Dosage: DAILY
     Dates: start: 2008
  6. OLMETEC [Concomitant]
     Active Substance: OLMESARTAN MEDOXOMIL
     Indication: DEPRESSION
     Dosage: 1/2 TABLET
     Route: 048
     Dates: start: 201603

REACTIONS (9)
  - Headache [Recovered/Resolved]
  - Dizziness [Recovered/Resolved]
  - Paraesthesia [Recovering/Resolving]
  - Alopecia [Not Recovered/Not Resolved]
  - Off label use [Recovered/Resolved]
  - Dry mouth [Not Recovered/Not Resolved]
  - Drug ineffective [Recovered/Resolved]
  - Blood pressure increased [Recovered/Resolved]
  - Nausea [Not Recovered/Not Resolved]

NARRATIVE: CASE EVENT DATE: 201605
